FAERS Safety Report 6647056-3 (Version None)
Quarter: 2010Q1

REPORT INFORMATION
  Report Type: 
  Country: None (occurrence: None)
  Receive Date: 20100318
  Receipt Date: 20100304
  Transmission Date: 20100710
  Serious: Yes (Other)
  Sender: FDA-Public Use
  Company Number: 007168

PATIENT
  Sex: Female
  Weight: 75 kg

DRUGS (11)
  1. CERTOLIZUMAB PEGOL [Suspect]
     Indication: RHEUMATOID ARTHRITIS
     Dosage: (400 MG 1X/2 WEEKS SUBCUTANEOUS) ; (200 MG 1X/2 WEEKS SUBCUTANEOUS)
     Route: 058
     Dates: start: 20090220, end: 20090323
  2. CERTOLIZUMAB PEGOL [Suspect]
     Indication: RHEUMATOID ARTHRITIS
     Dosage: (400 MG 1X/2 WEEKS SUBCUTANEOUS) ; (200 MG 1X/2 WEEKS SUBCUTANEOUS)
     Route: 058
     Dates: start: 20090504
  3. TRAMADOL HCL [Concomitant]
  4. CELEBREX [Concomitant]
  5. ARAVA [Concomitant]
  6. TYLENOL /00724201/ [Concomitant]
  7. PREDNISONE TAB [Concomitant]
  8. HYDROCHLOROTHIAZIDE [Concomitant]
  9. ESTRADIOL [Concomitant]
  10. MULTIVITAMIN /01229101/ [Concomitant]
  11. CALCIUM [Concomitant]

REACTIONS (4)
  - BLISTER [None]
  - OSTEOMYELITIS [None]
  - STAPHYLOCOCCAL INFECTION [None]
  - TOE AMPUTATION [None]
